FAERS Safety Report 5931854-5 (Version None)
Quarter: 2008Q4

REPORT INFORMATION
  Report Type: 
  Country: None (occurrence: None)
  Receive Date: 20081027
  Receipt Date: 20081014
  Transmission Date: 20090506
  Serious: Yes (Hospitalization)
  Sender: FDA-Public Use
  Company Number: JP-SANOFI-SYNTHELABO-F01200801380

PATIENT
  Sex: Male
  Weight: 70 kg

DRUGS (17)
  1. LAXOBERON [Concomitant]
     Indication: CONSTIPATION
     Dosage: UNK
     Route: 048
     Dates: start: 20080529, end: 20080606
  2. SENNOSIDE A+B [Concomitant]
     Indication: CONSTIPATION
     Dosage: 0.5 G
     Route: 048
     Dates: start: 20080529, end: 20080619
  3. NITRODERM [Concomitant]
     Dosage: UNK
     Dates: start: 20080524, end: 20080606
  4. LANSOPRAZOLE [Concomitant]
     Dosage: 15 MG
     Route: 048
     Dates: start: 20080522
  5. HUMALOG [Concomitant]
     Indication: DIABETES MELLITUS
     Dosage: UNK
     Route: 065
     Dates: start: 20080813
  6. BASEN OD [Concomitant]
     Indication: DIABETES MELLITUS
     Route: 048
     Dates: end: 20080812
  7. EPADEL S [Concomitant]
     Indication: HYPERLIPIDAEMIA
     Route: 048
     Dates: end: 20080619
  8. SIMVASTATIN [Concomitant]
     Indication: HYPERLIPIDAEMIA
     Dosage: 5 MG
     Route: 048
  9. ARTIST [Concomitant]
     Indication: HYPERTENSION
     Dosage: 2.5 MG
     Route: 048
  10. CONIEL [Concomitant]
     Indication: HYPERTENSION
     Dosage: 4 MG
     Route: 048
     Dates: end: 20080703
  11. DIOVAN [Concomitant]
     Indication: HYPERTENSION
     Route: 048
  12. ARGATROBAN [Concomitant]
     Indication: THROMBOSIS
     Dosage: 60 MG
     Route: 065
     Dates: start: 20080527, end: 20080528
  13. ARGATROBAN [Concomitant]
     Route: 065
     Dates: start: 20080530, end: 20080603
  14. AMARYL [Suspect]
     Indication: DIABETES MELLITUS
     Route: 048
     Dates: end: 20080812
  15. CLOPIDOGREL [Suspect]
     Indication: TRANSIENT ISCHAEMIC ATTACK
     Route: 048
     Dates: start: 20080522, end: 20080526
  16. CLOPIDOGREL [Suspect]
     Route: 048
     Dates: start: 20080527
  17. ACTOS [Concomitant]
     Indication: DIABETES MELLITUS
     Dosage: 30 MG
     Route: 048

REACTIONS (1)
  - HYPOGLYCAEMIA [None]
